FAERS Safety Report 9068643 (Version 1)
Quarter: 2013Q1

REPORT INFORMATION
  Report Type: Spontaneous
  Country: US (occurrence: None)
  Receive Date: 20130212
  Receipt Date: 20130212
  Transmission Date: 20140127
  Serious: Yes (Other)
  Sender: FDA-Public Use
  Company Number: None

PATIENT
  Age: 51 Year
  Sex: Male
  Weight: 113.4 kg

DRUGS (1)
  1. VITAMINS [Suspect]
     Indication: NUTRITIONAL SUPPLEMENTATION
     Dosage: 3 TABLETS  DAILY  PO
     Route: 048

REACTIONS (2)
  - Neuropathy peripheral [None]
  - Fatigue [None]
